FAERS Safety Report 15210567 (Version 2)
Quarter: 2018Q3

REPORT INFORMATION
  Report Type: Report from Study
  Country: None (occurrence: CO)
  Receive Date: 20180728
  Receipt Date: 20180816
  Transmission Date: 20181010
  Serious: Yes (Other)
  Sender: FDA-Public Use
  Company Number: CO-ABBVIE-18K-036-2432642-00

PATIENT
  Age: 63 Year
  Sex: Female

DRUGS (1)
  1. HUMIRA [Suspect]
     Active Substance: ADALIMUMAB
     Indication: RHEUMATOID ARTHRITIS
     Route: 058
     Dates: start: 20150722, end: 20180607

REACTIONS (3)
  - Neuropathy peripheral [Recovering/Resolving]
  - Rheumatoid arthritis [Unknown]
  - Asthenia [Unknown]

NARRATIVE: CASE EVENT DATE: 201807
